FAERS Safety Report 10445931 (Version 1)
Quarter: 2014Q3

REPORT INFORMATION
  Report Type: Spontaneous
  Country: KR (occurrence: KR)
  Receive Date: 20140910
  Receipt Date: 20140910
  Transmission Date: 20150326
  Serious: Yes (Life-Threatening, Hospitalization)
  Sender: FDA-Public Use
  Company Number: KR-ALLERGAN-1419379US

PATIENT
  Age: 12 Year
  Sex: Female

DRUGS (1)
  1. DAPSONE UNK [Suspect]
     Active Substance: DAPSONE
     Indication: DERMATOSIS
     Dosage: UNK

REACTIONS (5)
  - Multi-organ failure [Recovered/Resolved]
  - Septic shock [Recovered/Resolved]
  - Off label use [Unknown]
  - Drug reaction with eosinophilia and systemic symptoms [Recovered/Resolved]
  - Hepatitis fulminant [Recovered/Resolved]
